FAERS Safety Report 8821640 (Version 2)
Quarter: 2012Q4

REPORT INFORMATION
  Report Type: 
  Country: US (occurrence: US)
  Receive Date: 20121002
  Receipt Date: 20121019
  Transmission Date: 20130627
  Serious: No
  Sender: FDA-Public Use
  Company Number: US-ASTELLAS-2012US008161

PATIENT
  Age: 79 Year
  Sex: Female

DRUGS (8)
  1. CYMBALTA [Concomitant]
     Indication: PRODUCT USED FOR UNKNOWN INDICATION
     Dosage: 30 mg, Unknown/D
     Route: 065
  2. DICYCLOMINE                        /00068601/ [Concomitant]
     Indication: PRODUCT USED FOR UNKNOWN INDICATION
     Dosage: 20 mg, Unknown/D
     Route: 065
  3. HYDROXYZINE                        /00058402/ [Concomitant]
     Indication: PRODUCT USED FOR UNKNOWN INDICATION
     Dosage: 25 mg, Unknown/D
     Route: 065
  4. ALPRAZOLAM [Concomitant]
     Indication: PRODUCT USED FOR UNKNOWN INDICATION
     Dosage: 0.25 mg, Unknown/D
     Route: 065
  5. CARISOPRODOL [Concomitant]
     Indication: PRODUCT USED FOR UNKNOWN INDICATION
     Dosage: 350 mg, Unknown/D
     Route: 065
  6. OXYCODONE AND ACETAMINOPHEN [Concomitant]
     Indication: PRODUCT USED FOR UNKNOWN INDICATION
     Dosage: UNK
     Route: 065
  7. SALSALATE [Concomitant]
     Indication: PRODUCT USED FOR UNKNOWN INDICATION
     Dosage: 500 mg, Unknown/D
     Route: 065
  8. VESICARE [Suspect]
     Indication: HYPERTONIC BLADDER
     Dosage: 5 mg, UID/QD
     Route: 048
     Dates: start: 20120824, end: 20120827

REACTIONS (3)
  - Disorientation [Unknown]
  - Nausea [Recovered/Resolved]
  - Restlessness [Unknown]
